FAERS Safety Report 6728352-8 (Version None)
Quarter: 2010Q2

REPORT INFORMATION
  Report Type: 
  Country: None (occurrence: None)
  Receive Date: 20100517
  Receipt Date: 20100506
  Transmission Date: 20101027
  Serious: Yes (Other)
  Sender: FDA-Public Use
  Company Number: US-JNJCH-2010011105

PATIENT
  Sex: Female
  Weight: 43.1 kg

DRUGS (1)
  1. CHILDREN'S BENADRYL ALLERGY [Suspect]
     Indication: HYPERSENSITIVITY
     Dosage: TEXT:HALF TEASPOONFUL ONCE
     Route: 048
     Dates: start: 20100206, end: 20100206

REACTIONS (5)
  - DYSPNOEA [None]
  - INCOHERENT [None]
  - OFF LABEL USE [None]
  - PRODUCT QUALITY ISSUE [None]
  - UNRESPONSIVE TO STIMULI [None]
